FAERS Safety Report 4525569-8 (Version None)
Quarter: 2004Q4

REPORT INFORMATION
  Report Type: 
  Country: None (occurrence: None)
  Receive Date: 20041116
  Receipt Date: 20040827
  Transmission Date: 20050328
  Serious: No
  Sender: FDA-Public Use
  Company Number: S04-USA-05847-01

PATIENT
  Age: 83 Year
  Sex: Female

DRUGS (6)
  1. NAMENDA [Suspect]
     Indication: DEMENTIA ALZHEIMER'S TYPE
     Dosage: 20 MG QD PO
     Route: 048
     Dates: start: 20040129, end: 20040713
  2. ASPIRIN [Concomitant]
  3. MECLIZINE [Concomitant]
  4. CELEBREX [Concomitant]
  5. ARICEPT [Concomitant]
  6. ZOLOFT [Concomitant]

REACTIONS (5)
  - AGGRESSION [None]
  - AGITATION [None]
  - ANGER [None]
  - ANXIETY [None]
  - DEPRESSION [None]
